FAERS Safety Report 15295405 (Version 1)
Quarter: 2018Q3

REPORT INFORMATION
  Report Type: Spontaneous
  Country: US (occurrence: US)
  Receive Date: 20180807
  Receipt Date: 20180807
  Transmission Date: 20181010
  Serious: Yes (Disabling, Other)
  Sender: FDA-Public Use
  Company Number: None

PATIENT
  Age: 53 Year
  Sex: Female
  Weight: 86.4 kg

DRUGS (18)
  1. FIRAZYR [Concomitant]
     Active Substance: ICATIBANT ACETATE
  2. DICYCLOMINE [Concomitant]
     Active Substance: DICYCLOMINE HYDROCHLORIDE
  3. CUVITRU [Suspect]
     Active Substance: HUMAN IMMUNOGLOBULIN G
     Indication: SECONDARY IMMUNODEFICIENCY
     Dosage: ?          QUANTITY:10 GRAMS;OTHER FREQUENCY:ONCE A WEEK;?
     Route: 058
  4. ZANTAC [Concomitant]
     Active Substance: RANITIDINE HYDROCHLORIDE
  5. HYALURONIC ACID [Concomitant]
     Active Substance: HYALURONIC ACID
  6. CHLORPENERIAMINE [Concomitant]
  7. MUCINEX [Concomitant]
     Active Substance: GUAIFENESIN
  8. VITAMIN D3 [Concomitant]
     Active Substance: CHOLECALCIFEROL
  9. ATIVAN [Concomitant]
     Active Substance: LORAZEPAM
  10. HAEGARDA [Suspect]
     Active Substance: HUMAN C1-ESTERASE INHIBITOR
     Indication: HEREDITARY ANGIOEDEMA
     Dosage: QUANTITY:5200 INTERNATIONAL UNIT;OTHER FREQUENCY:EVERY 3 1/2 DAYS;?
     Route: 058
  11. CINRYZE [Concomitant]
     Active Substance: HUMAN C1-ESTERASE INHIBITOR
  12. BENADRYL [Concomitant]
     Active Substance: DIPHENHYDRAMINE HYDROCHLORIDE
  13. OCTAGAM IMMUNE GLOBULIN (HUMAN) [Concomitant]
     Active Substance: HUMAN IMMUNOGLOBULIN G
  14. MAGOX [Concomitant]
  15. VERAPAMIL ER [Concomitant]
     Active Substance: VERAPAMIL HYDROCHLORIDE
  16. AMBIEN CR [Concomitant]
     Active Substance: ZOLPIDEM TARTRATE
  17. NORVASC [Concomitant]
     Active Substance: AMLODIPINE BESYLATE
  18. TYLENOL [Concomitant]
     Active Substance: ACETAMINOPHEN

REACTIONS (5)
  - Dyspnoea [None]
  - Fatigue [None]
  - Memory impairment [None]
  - Gait inability [None]
  - Malaise [None]

NARRATIVE: CASE EVENT DATE: 20180105
